FAERS Safety Report 25542766 (Version 1)
Quarter: 2025Q3

REPORT INFORMATION
  Report Type: Spontaneous
  Country: CA (occurrence: CA)
  Receive Date: 20250711
  Receipt Date: 20250711
  Transmission Date: 20251021
  Serious: Yes (Other)
  Sender: Kenvue
  Company Number: CA-JNJFOC-20190908022

PATIENT

DRUGS (11)
  1. RHINOCORT AQUA [Suspect]
     Active Substance: BUDESONIDE
     Indication: Product used for unknown indication
     Dosage: SPRAY, METERED DOSE FREQUENCY TIME: 1 FREQUENCY TIME UNIT: DAYS
     Route: 045
  2. BUDESONIDE [Suspect]
     Active Substance: BUDESONIDE
     Indication: Product used for unknown indication
     Dosage: 2 DOSAGE FORM, ONCE A DAY (1 EVERY 1 DAYS)
     Route: 065
  3. ALBUTEROL SULFATE [Suspect]
     Active Substance: ALBUTEROL SULFATE
     Indication: Product used for unknown indication
     Route: 065
  4. PULMICORT TURBUHALER [Suspect]
     Active Substance: BUDESONIDE
     Indication: Product used for unknown indication
     Dosage: 2 DOSAGE FORM, ONCE A DAY (1 EVERY 1 DAYS)
     Route: 065
  5. MONTELUKAST SODIUM [Suspect]
     Active Substance: MONTELUKAST SODIUM
     Indication: Product used for unknown indication
     Route: 065
  6. BUDESONIDE\FORMOTEROL FUMARATE [Suspect]
     Active Substance: BUDESONIDE\FORMOTEROL FUMARATE
     Indication: Product used for unknown indication
     Route: 065
  7. PREDNISONE [Suspect]
     Active Substance: PREDNISONE
     Indication: Product used for unknown indication
     Dosage: 12.5 MILLIGRAM, ONCE A DAY (1 EVERY 1 DAYS)
     Route: 065
  8. MONTELUKAST [Suspect]
     Active Substance: MONTELUKAST
     Indication: Product used for unknown indication
     Dosage: 10 MILLIGRAM, ONCE A DAY (1 EVERY 1 DAYS)
     Route: 065
  9. RHINOCORT [Suspect]
     Active Substance: BUDESONIDE
     Indication: Product used for unknown indication
     Dosage: 2 DOSAGE FORM, ONCE A DAY (1 EVERY 1 DAYS)
     Route: 065
  10. ALBUTEROL [Suspect]
     Active Substance: ALBUTEROL
     Indication: Product used for unknown indication
     Route: 065
  11. SYMBICORT [Suspect]
     Active Substance: BUDESONIDE\FORMOTEROL FUMARATE DIHYDRATE
     Indication: Product used for unknown indication
     Dosage: 2 DOSAGE FORM, TWICE A DAY (1 EVERY 12 HOURS)
     Route: 065

REACTIONS (6)
  - Gastrooesophageal reflux disease [Unknown]
  - Hypertension [Unknown]
  - Malignant melanoma [Unknown]
  - Osteoporosis [Unknown]
  - Tuberculosis [Unknown]
  - Depression [Unknown]
